FAERS Safety Report 7606682 (Version 4)
Quarter: 2014Q1

REPORT INFORMATION
  Report Type: Spontaneous
  Country: US (occurrence: US)
  Receive Date: 20100927
  Receipt Date: 20140214
  Transmission Date: 20141002
  Serious: Yes (Hospitalization)
  Sender: FDA-Public Use
  Company Number: US-BIOGENIDEC-2010BI032265

PATIENT
  Age: 35 Year
  Sex: Male
  Weight: 127 kg

DRUGS (6)
  1. TYSABRI [Suspect]
     Indication: MULTIPLE SCLEROSIS
     Route: 042
     Dates: start: 20080812
  2. COUMADIN [Concomitant]
     Indication: PULMONARY EMBOLISM
     Dates: start: 2004
  3. METHADONE [Concomitant]
     Indication: MYALGIA
     Dates: start: 200008
  4. NUCYNTA [Concomitant]
     Indication: MYALGIA
     Dates: start: 200008
  5. LYRICA [Concomitant]
     Indication: MYALGIA
     Dates: start: 200008
  6. CYMBALTA [Concomitant]
     Indication: MYALGIA
     Dates: start: 200008

REACTIONS (8)
  - Pulmonary embolism [Not Recovered/Not Resolved]
  - Fatigue [Recovered/Resolved]
  - Myalgia [Not Recovered/Not Resolved]
  - Executive dysfunction [Not Recovered/Not Resolved]
  - Gingival bleeding [Recovered/Resolved]
  - Tooth disorder [Recovered/Resolved]
  - Optic neuritis [Recovered/Resolved]
  - Pain in extremity [Recovered/Resolved]
